FAERS Safety Report 9495892 (Version 2)
Quarter: 2013Q3

REPORT INFORMATION
  Report Type: Spontaneous
  Country: US (occurrence: US)
  Receive Date: 20130903
  Receipt Date: 20130925
  Transmission Date: 20140515
  Serious: Yes (Hospitalization)
  Sender: FDA-Public Use
  Company Number: US-GILEAD-2013-0082312

PATIENT
  Age: 45 Year
  Sex: Male

DRUGS (2)
  1. LETAIRIS [Suspect]
     Indication: PULMONARY HYPERTENSION
     Dosage: 10 MG, QD
     Route: 048
     Dates: start: 20120612
  2. LETAIRIS [Suspect]
     Indication: CONGESTIVE CARDIOMYOPATHY

REACTIONS (1)
  - Infected skin ulcer [Recovered/Resolved]
